FAERS Safety Report 8537657-X (Version None)
Quarter: 2012Q3

REPORT INFORMATION
  Report Type: 
  Country: None (occurrence: None)
  Receive Date: 20120725
  Receipt Date: 20120718
  Transmission Date: 20120928
  Serious: Yes (Disabling, Other)
  Sender: FDA-Public Use
  Company Number: PHHY2012BR053325

PATIENT
  Age: 87 Year
  Sex: Female

DRUGS (7)
  1. DIOVAN [Suspect]
     Indication: HYPERTENSION
     Dosage: 160 MG, DAILY
     Route: 048
  2. ISOSORBIDE MONONITRATE [Concomitant]
     Dosage: 10 MG, BID
     Route: 048
  3. AMLODOPINE BESYLATE AND VALSARTAN [Suspect]
     Indication: HYPERTENSION
     Dosage: 1 DF (160/5 MG), DAILY
     Route: 048
  4. CONCOR [Concomitant]
     Dosage: 5 MG, DAILY
     Route: 048
  5. EXELON [Concomitant]
     Indication: MEMORY IMPAIRMENT
     Dosage: 1.5 ML, BID (2 MG/ML ORAL SOLUTION)
     Route: 048
  6. SIMVASTATIN [Concomitant]
     Indication: BLOOD CHOLESTEROL
     Dosage: 20 MG, UNK
     Route: 048
  7. SIMVASTATIN [Concomitant]
     Indication: BLOOD TRIGLYCERIDES

REACTIONS (4)
  - FEMUR FRACTURE [None]
  - RETINAL DEGENERATION [None]
  - FALL [None]
  - VISUAL IMPAIRMENT [None]
